FAERS Safety Report 14541635 (Version 2)
Quarter: 2018Q2

REPORT INFORMATION
  Report Type: Spontaneous
  Country: FR (occurrence: FR)
  Receive Date: 20180216
  Receipt Date: 20180416
  Transmission Date: 20180711
  Serious: Yes (Hospitalization, Other)
  Sender: FDA-Public Use
  Company Number: PHHY2017FR200820

PATIENT
  Sex: Female

DRUGS (13)
  1. ADRIAMYCIN [Suspect]
     Active Substance: DOXORUBICIN HYDROCHLORIDE
     Dosage: 47 MG, UNK
     Route: 042
     Dates: start: 20171127
  2. METHOTREXATE. [Suspect]
     Active Substance: METHOTREXATE
     Indication: ACUTE LYMPHOCYTIC LEUKAEMIA
     Dosage: 15 MG, QD
     Route: 037
     Dates: start: 20171116, end: 20171116
  3. DEXAMETHASONE. [Suspect]
     Active Substance: DEXAMETHASONE
     Dosage: 15.6 MG, UNK
     Route: 048
     Dates: start: 20171201
  4. HYDROCORTISONE. [Suspect]
     Active Substance: HYDROCORTISONE
     Indication: ACUTE LYMPHOCYTIC LEUKAEMIA
     Dosage: 15.6 MG, QD
     Route: 037
     Dates: start: 20171113, end: 20171203
  5. PEGASPARGASE [Suspect]
     Active Substance: PEGASPARGASE
     Indication: ACUTE LYMPHOCYTIC LEUKAEMIA
     Dosage: 1950 IU, 1X/DAY:QD
     Route: 042
     Dates: start: 20171116, end: 20171116
  6. ADRIAMYCIN [Suspect]
     Active Substance: DOXORUBICIN HYDROCHLORIDE
     Indication: ACUTE LYMPHOCYTIC LEUKAEMIA
     Dosage: 47 MG, QD
     Route: 042
     Dates: start: 20171113
  7. DEXAMETHASONE. [Suspect]
     Active Substance: DEXAMETHASONE
     Indication: ACUTE LYMPHOCYTIC LEUKAEMIA
     Dosage: 15.6 MG, QD
     Route: 048
     Dates: start: 20171113
  8. DEXAMETHASONE. [Suspect]
     Active Substance: DEXAMETHASONE
     Dosage: 15.6 MG, 1X/DAY:QD
     Route: 048
     Dates: start: 20171113, end: 20171201
  9. VINCRISTINE [Suspect]
     Active Substance: VINCRISTINE
     Indication: ACUTE LYMPHOCYTIC LEUKAEMIA
     Dosage: 2 MG, QD
     Route: 042
     Dates: start: 20171113
  10. PEGASPARGASE [Suspect]
     Active Substance: PEGASPARGASE
     Dosage: 1950 IU, UNK
     Route: 042
     Dates: start: 20171116
  11. CYTARABINE. [Suspect]
     Active Substance: CYTARABINE
     Indication: ACUTE LYMPHOCYTIC LEUKAEMIA
     Dosage: 30 MG, QD
     Route: 037
     Dates: start: 20171116
  12. HYDROCORTISONE. [Suspect]
     Active Substance: HYDROCORTISONE
     Dosage: 15.6 MG, 1X/DAY:QD
     Route: 037
     Dates: start: 20171113, end: 20171203
  13. VINCRISTINE [Suspect]
     Active Substance: VINCRISTINE
     Dosage: 2 MG, UNK
     Route: 042
     Dates: start: 20171127

REACTIONS (1)
  - Diabetes mellitus [Recovered/Resolved]

NARRATIVE: CASE EVENT DATE: 20171201
